FAERS Safety Report 9696917 (Version 2)
Quarter: 2013Q4

REPORT INFORMATION
  Report Type: Spontaneous
  Country: US (occurrence: US)
  Receive Date: 20131119
  Receipt Date: 20131119
  Transmission Date: 20140711
  Serious: No
  Sender: FDA-Public Use
  Company Number: US-GILEAD-2007-0014013

PATIENT
  Age: 75 Year
  Sex: Female
  Weight: 58.97 kg

DRUGS (18)
  1. LETAIRIS [Suspect]
     Indication: PULMONARY ARTERIAL HYPERTENSION
     Route: 048
  2. NORVASC [Concomitant]
     Indication: HYPERTENSION
     Route: 048
  3. CLONIDINE [Concomitant]
     Indication: HYPERTENSION
     Route: 048
  4. VASOTEC [Concomitant]
     Indication: HYPERTENSION
     Route: 048
  5. TRICOR [Concomitant]
     Route: 048
  6. PLAVIX [Concomitant]
     Route: 048
  7. PROZAC [Concomitant]
     Route: 048
  8. AUGMENTIN [Concomitant]
     Route: 048
  9. CELEBREX [Concomitant]
     Route: 048
  10. ASPIRIN [Concomitant]
     Route: 048
  11. IRON [Concomitant]
     Route: 048
  12. OXYTROL [Concomitant]
  13. PREVACID [Concomitant]
     Route: 048
  14. TYLENOL [Concomitant]
     Route: 048
  15. ACTONEL [Concomitant]
     Route: 048
  16. CALCITRIOL [Concomitant]
     Route: 048
  17. GLUCOSAMINE [Concomitant]
     Route: 048
  18. MILK OF MAGNESIA [Concomitant]
     Route: 048

REACTIONS (1)
  - Hypertension [Unknown]
